FAERS Safety Report 9391833 (Version 1)
Quarter: 2013Q3

REPORT INFORMATION
  Report Type: Spontaneous
  Country: US (occurrence: US)
  Receive Date: 20130709
  Receipt Date: 20130709
  Transmission Date: 20140515
  Serious: No
  Sender: FDA-Public Use
  Company Number: US-009507513-1307USA003454

PATIENT
  Sex: Male

DRUGS (1)
  1. AFRIN PUMP SPRAY [Suspect]
     Indication: NASOPHARYNGITIS
     Dosage: UNK, UNKNOWN
     Route: 045
     Dates: start: 201306, end: 20130624

REACTIONS (3)
  - Nasal dryness [Unknown]
  - Rhinorrhoea [Unknown]
  - Incorrect drug administration duration [Unknown]
